FAERS Safety Report 19495917 (Version 4)
Quarter: 2021Q3

REPORT INFORMATION
  Report Type: Spontaneous
  Country: US (occurrence: US)
  Receive Date: 20210706
  Receipt Date: 20210729
  Transmission Date: 20211014
  Serious: Yes (Hospitalization, Other)
  Sender: FDA-Public Use
  Company Number: US-SA-2021SA219687

PATIENT
  Sex: Female
  Weight: 59.4 kg

DRUGS (1)
  1. LEMTRADA [Suspect]
     Active Substance: ALEMTUZUMAB
     Indication: MULTIPLE SCLEROSIS
     Dosage: 12 MG, QD
     Route: 042
     Dates: start: 20210628, end: 20210629

REACTIONS (5)
  - Pulmonary alveolar haemorrhage [Not Recovered/Not Resolved]
  - Haemoptysis [Unknown]
  - Pneumonitis [Not Recovered/Not Resolved]
  - Acute respiratory distress syndrome [Unknown]
  - Dyspnoea [Unknown]

NARRATIVE: CASE EVENT DATE: 20210629
